FAERS Safety Report 8373139-6 (Version None)
Quarter: 2012Q2

REPORT INFORMATION
  Report Type: 
  Country: None (occurrence: None)
  Receive Date: 20120521
  Receipt Date: 20120514
  Transmission Date: 20120825
  Serious: No
  Sender: FDA-Public Use
  Company Number: US-PFIZER INC-2012117256

PATIENT
  Sex: Female
  Weight: 104.31 kg

DRUGS (2)
  1. GLYSET [Suspect]
     Indication: DIABETES MELLITUS
     Dosage: 25 MG, 3X/DAY
     Route: 048
     Dates: end: 20120509
  2. INSULIN [Concomitant]
     Indication: DIABETES MELLITUS
     Dosage: UNK

REACTIONS (1)
  - BLOOD GLUCOSE INCREASED [None]
